FAERS Safety Report 6094414-4 (Version None)
Quarter: 2009Q1

REPORT INFORMATION
  Report Type: 
  Country: None (occurrence: None)
  Receive Date: 20090226
  Receipt Date: 20080312
  Transmission Date: 20090719
  Serious: No
  Sender: FDA-Public Use
  Company Number: A0716483A

PATIENT
  Sex: Male

DRUGS (4)
  1. ALKERAN [Suspect]
     Indication: MULTIPLE MYELOMA
     Route: 065
  2. REVLIMID [Suspect]
     Indication: MULTIPLE MYELOMA
     Route: 065
  3. PREDNISONE [Concomitant]
  4. NEXIUM [Concomitant]

REACTIONS (2)
  - ASTHENIA [None]
  - FATIGUE [None]
